FAERS Safety Report 22092600 (Version 1)
Quarter: 2023Q1

REPORT INFORMATION
  Report Type: Spontaneous
  Country: SE (occurrence: SE)
  Receive Date: 20230314
  Receipt Date: 20230314
  Transmission Date: 20230417
  Serious: Yes (Death)
  Sender: FDA-Public Use
  Company Number: None

PATIENT
  Age: 72 Year
  Sex: Female

DRUGS (10)
  1. CAPECITABINE [Suspect]
     Active Substance: CAPECITABINE
     Indication: Colon cancer metastatic
     Dosage: 1400 + 1350
  2. BETAPRED [Concomitant]
     Active Substance: BETAMETHASONE SODIUM PHOSPHATE
     Dosage: STRENGTH: 0.5 MG, ACCORDING TO SPECIAL PRESCRIPTION
  3. UREA [Concomitant]
     Active Substance: UREA
     Dosage: STRENGTH: 5%, 1 APPLICATION 1-2 TIMES DAILY
     Dates: start: 20190727
  4. ELOCON [Concomitant]
     Active Substance: MOMETASONE FUROATE
     Dosage: STRENGTH: 0.1%, ACCORDING TO SPECIAL PRESCRIPTION
     Dates: start: 20190726
  5. IMODIUM [Concomitant]
     Active Substance: LOPERAMIDE HYDROCHLORIDE
     Dosage: STRENGTH: 2 MG, 3 TABLETS AT 07:30, 3 TABLETS AT 11:30 AND 3 TABLETS AT 16:30
  6. LETROZOLE [Concomitant]
     Active Substance: LETROZOLE
     Dosage: 1 TABLET 1 TIME DAILY
     Dates: start: 20220202
  7. METOCLOPRAMIDE [Concomitant]
     Active Substance: METOCLOPRAMIDE
     Dosage: 1 TABLET AS REQUIRED
  8. ONDANSETRON [Concomitant]
     Active Substance: ONDANSETRON
     Dosage: 1 TABLET 3 TIMES DAILY
  9. REPLENS [Concomitant]
     Active Substance: CARBOMER 934\GLYCERIN\METHYLPARABEN\PROPYLPARABEN\SODIUM HYDROXIDE
     Dosage: 1 APPLICATOR 3 NIGHTS/WEEK
  10. SODIUM CHLORIDE [Concomitant]
     Active Substance: SODIUM CHLORIDE
     Dosage: 2 CAPSULES 3 TIMES DAILY

REACTIONS (1)
  - Acute myocardial infarction [Fatal]

NARRATIVE: CASE EVENT DATE: 20230205
